FAERS Safety Report 6805141-7 (Version None)
Quarter: 2010Q2

REPORT INFORMATION
  Report Type: 
  Country: None (occurrence: None)
  Receive Date: 20100628
  Receipt Date: 20070904
  Transmission Date: 20101027
  Serious: No
  Sender: FDA-Public Use
  Company Number: US-PFIZER INC-2007074593

PATIENT
  Sex: Male
  Weight: 72.7 kg

DRUGS (2)
  1. XALATAN [Suspect]
     Indication: INTRAOCULAR PRESSURE INCREASED
     Route: 031
     Dates: start: 20070801
  2. COZAAR [Concomitant]

REACTIONS (1)
  - DYSPNOEA [None]
